FAERS Safety Report 20101505 (Version 1)
Quarter: 2021Q4

REPORT INFORMATION
  Report Type: Spontaneous
  Country: US (occurrence: None)
  Receive Date: 20211122
  Receipt Date: 20211122
  Transmission Date: 20220303
  Serious: Yes (Hospitalization)
  Sender: FDA-Public Use
  Company Number: None

PATIENT
  Age: 76 Year
  Sex: Male

DRUGS (1)
  1. EVEROLIMUS [Suspect]
     Active Substance: EVEROLIMUS
     Indication: Renal cancer
     Dosage: FREQUENCY : DAILY;?
     Route: 048

REACTIONS (5)
  - Pneumonia [None]
  - Localised infection [None]
  - Dehydration [None]
  - Malnutrition [None]
  - Hypertension [None]

NARRATIVE: CASE EVENT DATE: 20211122
